FAERS Safety Report 14661735 (Version 1)
Quarter: 2018Q1

REPORT INFORMATION
  Report Type: Spontaneous
  Country: US (occurrence: US)
  Receive Date: 20180320
  Receipt Date: 20180320
  Transmission Date: 20180509
  Serious: Yes (Other)
  Sender: FDA-Public Use
  Company Number: US-LANNETT COMPANY, INC.-US-2018LAN000550

PATIENT
  Sex: Male

DRUGS (2)
  1. LOTEMAX [Suspect]
     Active Substance: LOTEPREDNOL ETABONATE
     Indication: CORNEAL OEDEMA
     Dosage: TID IN LEFT EYE
     Route: 031
  2. DICYCLOMINE HYDROCHLORIDE (20MG) [Suspect]
     Active Substance: DICYCLOMINE HYDROCHLORIDE
     Indication: ABDOMINAL DISCOMFORT
     Dosage: 10 MG, QD
     Route: 048
     Dates: start: 2018, end: 20180305

REACTIONS (4)
  - Corneal endothelial cell loss [Recovered/Resolved]
  - Product use in unapproved indication [Recovered/Resolved]
  - Vision blurred [Recovered/Resolved]
  - Corneal oedema [Recovered/Resolved]

NARRATIVE: CASE EVENT DATE: 2018
